FAERS Safety Report 14165299 (Version 2)
Quarter: 2018Q1

REPORT INFORMATION
  Report Type: Spontaneous
  Country: US (occurrence: US)
  Receive Date: 20171107
  Receipt Date: 20180103
  Transmission Date: 20180508
  Serious: Yes (Other)
  Sender: FDA-Public Use
  Company Number: US-009507513-1710USA014973

PATIENT
  Age: 55 Year
  Sex: Male
  Weight: 97 kg

DRUGS (33)
  1. CLINDAMYCIN. [Concomitant]
     Active Substance: CLINDAMYCIN
     Dosage: 900 MG, UNK
     Route: 042
  2. OXYGEN. [Concomitant]
     Active Substance: OXYGEN
     Dosage: MASK VENTILATION
     Route: 055
  3. ACETAMINOPHEN (+) OXYCODONE HYDROCHLORIDE [Concomitant]
     Active Substance: ACETAMINOPHEN\OXYCODONE HYDROCHLORIDE
     Dosage: UNK
  4. ONDANSETRON [Concomitant]
     Active Substance: ONDANSETRON
     Dosage: 4 MG, UNK
     Route: 042
  5. HYDROCHLOROTHIAZIDE (+) VALSARTAN [Suspect]
     Active Substance: HYDROCHLOROTHIAZIDE\VALSARTAN
     Dosage: UNK
  6. PROPOFOL. [Suspect]
     Active Substance: PROPOFOL
     Indication: INDUCTION OF ANAESTHESIA
     Dosage: 200 MG (ALSO REPORTED AS 2.1 MG/KG)
  7. FENTANYL. [Suspect]
     Active Substance: FENTANYL
     Dosage: 100 MICROGRAM, UNK
  8. SCOPOLAMINE [Concomitant]
     Active Substance: SCOPOLAMINE
     Indication: PROPHYLAXIS OF NAUSEA AND VOMITING
     Dosage: 1.5 MG, UNK
     Route: 062
  9. OXYGEN. [Concomitant]
     Active Substance: OXYGEN
     Dosage: PREOXYGENATION
  10. DULOXETINE HYDROCHLORIDE. [Concomitant]
     Active Substance: DULOXETINE HYDROCHLORIDE
     Dosage: 60 MG, (2 HOURS BEFORE ARRIVAL)
  11. HYDROMORPHONE [Concomitant]
     Active Substance: HYDROMORPHONE
     Dosage: 1 MG, UNK
     Route: 042
  12. TRAZODONE HYDROCHLORIDE. [Concomitant]
     Active Substance: TRAZODONE HYDROCHLORIDE
     Dosage: 150 MG, UNK
     Route: 048
  13. DESFLURANE. [Concomitant]
     Active Substance: DESFLURANE
     Dosage: INSPIRED CONCENTRATION DECREASED TO 3%-3.5%
  14. LIDOCAINE. [Suspect]
     Active Substance: LIDOCAINE
     Indication: INDUCTION OF ANAESTHESIA
     Dosage: 80 MG, UNK
  15. OXYGEN. [Concomitant]
     Active Substance: OXYGEN
     Dosage: UNK, TO ACHIEVE AN END-TIDAL CONCENTRATION OF 6.0% TO 6.5%
  16. DICLOFENAC [Concomitant]
     Active Substance: DICLOFENAC
     Dosage: 75 MG, UNK
  17. ACETAMINOPHEN. [Concomitant]
     Active Substance: ACETAMINOPHEN
     Indication: ANALGESIC THERAPY
     Dosage: 500 MG, UNK
     Route: 048
  18. TRAMADOL HYDROCHLORIDE. [Concomitant]
     Active Substance: TRAMADOL HYDROCHLORIDE
     Dosage: UNK MG, UNK
  19. OMEPRAZOLE. [Concomitant]
     Active Substance: OMEPRAZOLE
     Dosage: 20 MG, UNK
  20. DIPHENHYDRAMINE. [Concomitant]
     Active Substance: DIPHENHYDRAMINE
     Dosage: 25 MG, UNK
  21. ZEMURON [Suspect]
     Active Substance: ROCURONIUM BROMIDE
     Indication: INDUCTION OF ANAESTHESIA
     Dosage: 5 MG, UNK
  22. PROPOFOL. [Suspect]
     Active Substance: PROPOFOL
     Dosage: INFUSION RATE: 50 MICROGRAM/KG/MIN
     Route: 042
  23. FENTANYL. [Suspect]
     Active Substance: FENTANYL
     Indication: INDUCTION OF ANAESTHESIA
     Dosage: 150 MICROGRAM (ALSO REPORTED AS 1.5 MICROGRAM/KG)
  24. TESTOSTERONE. [Suspect]
     Active Substance: TESTOSTERONE
     Dosage: STRENGTH: 30 MG/1.5 ML
     Route: 062
  25. SUCCINYLCHOLINE CHLORIDE. [Suspect]
     Active Substance: SUCCINYLCHOLINE CHLORIDE
     Indication: INDUCTION OF ANAESTHESIA
     Dosage: 140 MG, UNK
  26. ELECTROLYTES (UNSPECIFIED) (+) SODIUM LACTATE [Concomitant]
     Active Substance: ELECTROLYTES NOS\SODIUM LACTATE
     Dosage: RINGER^S SOLUTION, APPROXIMATELY 500 ML (ALSO RESPOTED AS TOTAL LACTATED RINGER^S SOLUTION: 2500 ML)
  27. ASPIRIN. [Concomitant]
     Active Substance: ASPIRIN
     Dosage: 81 MG, UNK
     Route: 048
  28. SEVOFLURANE. [Concomitant]
     Active Substance: SEVOFLURANE
     Dosage: MASK VENTILATION (2% INSPIRED CONCENTRATION)
     Route: 055
  29. DESFLURANE. [Concomitant]
     Active Substance: DESFLURANE
     Dosage: UNK, TO ACHIEVE AN END-TIDAL CONCENTRATION OF 6.0% TO 6.5%
  30. PROPOFOL. [Suspect]
     Active Substance: PROPOFOL
     Dosage: ADDITIONAL 50 MG, UNK
  31. FAMOTIDINE. [Concomitant]
     Active Substance: FAMOTIDINE
     Dosage: 20 MG, UNK
     Route: 042
  32. SILDENAFIL CITRATE. [Suspect]
     Active Substance: SILDENAFIL CITRATE
     Dosage: 100 MG, UNK
  33. MIDAZOLAM [Concomitant]
     Active Substance: MIDAZOLAM HYDROCHLORIDE
     Dosage: 2 MG, ADMINISTERED DIRECTLY BEFORE TRANSPORTATION TO THE OPERATING ROOM
     Route: 042

REACTIONS (1)
  - Hypotension [Recovered/Resolved]
